FAERS Safety Report 15680390 (Version 1)
Quarter: 2018Q4

REPORT INFORMATION
  Report Type: Spontaneous
  Country: JP (occurrence: JP)
  Receive Date: 20181203
  Receipt Date: 20181203
  Transmission Date: 20190205
  Serious: Yes (Death, Other)
  Sender: FDA-Public Use
  Company Number: JP-BRISTOL-MYERS SQUIBB COMPANY-BMS-2018-113067

PATIENT
  Age: 75 Year
  Sex: Male

DRUGS (1)
  1. OPDIVO [Suspect]
     Active Substance: NIVOLUMAB
     Indication: HEAD AND NECK CANCER
     Dosage: 120 MG(12/06/2018,27/06,11/07)
     Route: 041
     Dates: start: 20180612, end: 20180711

REACTIONS (2)
  - Pneumonia aspiration [Unknown]
  - Dyspnoea [Fatal]

NARRATIVE: CASE EVENT DATE: 2018
